FAERS Safety Report 22022108 (Version 1)
Quarter: 2023Q1

REPORT INFORMATION
  Report Type: Spontaneous
  Country: KR (occurrence: KR)
  Receive Date: 20230222
  Receipt Date: 20230222
  Transmission Date: 20230417
  Serious: Yes (Death)
  Sender: FDA-Public Use
  Company Number: KR-GUERBET / KOREA-KR-20230003

PATIENT
  Age: 58 Year
  Sex: Male

DRUGS (2)
  1. LIPIODOL [Suspect]
     Active Substance: ETHIODIZED OIL
     Indication: Transcatheter arterial chemoembolisation
     Dosage: 20 ML OF LIPIODOL IN MIXTURE WITH 30 MG OF ADRIAMYCIN (DOXORUBICIN).
     Route: 013
  2. ADRIAMYCIN [Suspect]
     Active Substance: DOXORUBICIN HYDROCHLORIDE
     Indication: Transcatheter arterial chemoembolisation
     Dosage: 20 ML OF LIPIODOL IN MIXTURE WITH 30 MG OF ADRIAMYCIN (DOXORUBICIN).
     Route: 013

REACTIONS (4)
  - Spinal cord infarction [Fatal]
  - Metabolic acidosis [Fatal]
  - Hypovolaemic shock [Fatal]
  - Azotaemia [Fatal]
